FAERS Safety Report 7930379-5 (Version None)
Quarter: 2011Q4

REPORT INFORMATION
  Report Type: 
  Country: None (occurrence: None)
  Receive Date: 20111117
  Receipt Date: 20111103
  Transmission Date: 20120403
  Serious: Yes (Death, Other)
  Sender: FDA-Public Use
  Company Number: 1103565

PATIENT
  Age: 26 Year
  Sex: Male

DRUGS (18)
  1. CYTARABINE [Suspect]
     Indication: PRECURSOR T-LYMPHOBLASTIC LYMPHOMA/LEUKAEMIA
     Dosage: 100 MG, INTRATHECAL
  2. GANCICLOVIR [Concomitant]
  3. VINCRISTINE SULFATE [Suspect]
     Indication: PRECURSOR T-LYMPHOBLASTIC LYMPHOMA/LEUKAEMIA
     Dosage: 1.4 MG/M^2, INTRAVENOUS BOLUS
     Route: 040
  4. (ALEMTUZUMAB) [Suspect]
     Indication: PRECURSOR T-LYMPHOBLASTIC LYMPHOMA/LEUKAEMIA
     Dosage: 30 MG, SUBCUTANEOUS
     Route: 058
  5. METHOTREXATE [Suspect]
     Indication: PRECURSOR T-LYMPHOBLASTIC LYMPHOMA/LEUKAEMIA
     Dosage: 12 MG, INTRATHECAL
     Route: 037
  6. (MESNA) [Concomitant]
  7. LEUCOVORIN CALCIUM [Concomitant]
  8. METHOTREXATE [Suspect]
     Indication: PRECURSOR T-LYMPHOBLASTIC LYMPHOMA/LEUKAEMIA
     Dosage: 200 MG/M^2 INTRAVENOUS (NOT OTHERWISE SPECIFIED ; 800 MG/M^2 INTRAVENOUS (NOT OTHERWISE SPECIFIED)
     Route: 042
  9. DEXAMETHASONE [Suspect]
     Indication: PRECURSOR T-LYMPHOBLASTIC LYMPHOMA/LEUKAEMIA
     Dosage: 40 MG/DAY, INTRAVENOUS (NOT OTHERWISE SPECIFIED)
     Route: 042
  10. DOXORUBICIN HCL [Suspect]
     Indication: PRECURSOR T-LYMPHOBLASTIC LYMPHOMA/LEUKAEMIA
     Dosage: 50 MG/M^2
  11. DIPHENHYDRAMINE HCL [Concomitant]
  12. ACYCLOVIR [Concomitant]
  13. (FILGRASTIM) [Concomitant]
  14. ACETAMINOPHEN [Concomitant]
  15. FLUCONAZOLE [Concomitant]
  16. CYTARABINE [Suspect]
     Indication: PRECURSOR T-LYMPHOBLASTIC LYMPHOMA/LEUKAEMIA
     Dosage: 3 G/M^2 TWICE A DAY INTRAVENOUS (NOT OTHERWISE SPECIFIED)
     Route: 042
  17. CYCLOPHOSPHAMIDE [Suspect]
     Indication: PRECURSOR T-LYMPHOBLASTIC LYMPHOMA/LEUKAEMIA
     Dosage: 300 MG/M^2, INTRAVENOUS (NOT OTHERWISE SPECIFIED)
     Route: 042
  18. (SULFAMETHOXAZOLE AND TRIMETHOPRIM) [Concomitant]

REACTIONS (2)
  - CYTOMEGALOVIRUS INFECTION [None]
  - NEUTROPENIC SEPSIS [None]
